FAERS Safety Report 10285126 (Version 2)
Quarter: 2014Q3

REPORT INFORMATION
  Report Type: Spontaneous
  Country: US (occurrence: US)
  Receive Date: 20140708
  Receipt Date: 20140708
  Transmission Date: 20150326
  Serious: Yes (Other)
  Sender: FDA-Public Use
  Company Number: CHPA2014US008916

PATIENT
  Age: 52 Year
  Sex: Male

DRUGS (3)
  1. ALPHA-KERI MOISTURE RICH OIL [Suspect]
     Active Substance: BENZOPHENONE
     Dosage: 5 CAPFULS IN BATH
     Route: 061
  2. ALPHA-KERI MOISTURE RICH OIL [Suspect]
     Active Substance: BENZOPHENONE
     Indication: DRY SKIN
     Dosage: UNK
     Route: 061
  3. CLONAZEPAM. [Concomitant]
     Active Substance: CLONAZEPAM
     Indication: PSYCHOTIC DISORDER
     Dosage: 1 MG, QHS
     Dates: start: 201306

REACTIONS (3)
  - Joint injury [Recovered/Resolved]
  - Impaired healing [Unknown]
  - Thrombosis [Recovered/Resolved]
